FAERS Safety Report 5151629-7 (Version None)
Quarter: 2006Q4

REPORT INFORMATION
  Report Type: 
  Country: None (occurrence: None)
  Receive Date: 20061115
  Receipt Date: 20060619
  Transmission Date: 20070319
  Serious: No
  Sender: FDA-Public Use
  Company Number: US-BRISTOL-MYERS SQUIBB COMPANY-13416748

PATIENT
  Age: 42 Day
  Sex: Male
  Weight: 95 kg

DRUGS (4)
  1. SUSTIVA [Suspect]
     Indication: HIV TEST POSITIVE
     Route: 048
     Dates: start: 20010101
  2. COMBIVIR [Concomitant]
     Dates: start: 20010101
  3. LEVAQUIN [Concomitant]
     Dates: start: 20060201, end: 20060201
  4. TRICOR [Concomitant]

REACTIONS (1)
  - DRUG SCREEN FALSE POSITIVE [None]
